FAERS Safety Report 26188727 (Version 1)
Quarter: 2025Q4

REPORT INFORMATION
  Report Type: Spontaneous
  Country: CN (occurrence: CN)
  Receive Date: 20251222
  Receipt Date: 20251222
  Transmission Date: 20260117
  Serious: Yes (Other)
  Sender: Haleon PLC
  Company Number: CN-HALEON-2280447

PATIENT
  Age: 56 Year
  Sex: Female
  Weight: 55 kg

DRUGS (4)
  1. DICLOFENAC SODIUM [Suspect]
     Active Substance: DICLOFENAC SODIUM
     Indication: Analgesic therapy
     Dosage: DOSE FORM: ENTERIC-COATED TABLETS
     Dates: start: 20251204, end: 20251215
  2. EPERISONE HYDROCHLORIDE [Suspect]
     Active Substance: EPERISONE HYDROCHLORIDE
     Indication: Analgesic therapy
     Dates: start: 20251204, end: 20251215
  3. METHYLCOBALAMIN [Suspect]
     Active Substance: METHYLCOBALAMIN
     Indication: Nervous system disorder prophylaxis
     Dates: start: 20251204, end: 20251215
  4. HORSE CHESTNUT [Suspect]
     Active Substance: HORSE CHESTNUT
     Indication: Analgesic therapy

REACTIONS (2)
  - Intracranial infection [Recovering/Resolving]
  - Transaminases increased [Recovering/Resolving]

NARRATIVE: CASE EVENT DATE: 20251209
